FAERS Safety Report 8368918-5 (Version None)
Quarter: 2012Q2

REPORT INFORMATION
  Report Type: 
  Country: None (occurrence: None)
  Receive Date: 20120516
  Receipt Date: 20120516
  Transmission Date: 20120825
  Serious: Yes (Other)
  Sender: FDA-Public Use
  Company Number: None

PATIENT
  Age: 51 Year
  Sex: Male
  Weight: 88.7689 kg

DRUGS (1)
  1. SORAFENIB 200 MG BAYER [Suspect]
     Indication: LUNG CANCER METASTATIC
     Dosage: 400 MG BID ORAL
     Route: 048
     Dates: start: 20111202, end: 20120323

REACTIONS (1)
  - SQUAMOUS CELL CARCINOMA [None]
